FAERS Safety Report 5481147-8 (Version None)
Quarter: 2007Q4

REPORT INFORMATION
  Report Type: 
  Country: None (occurrence: None)
  Receive Date: 20071004
  Receipt Date: 20070919
  Transmission Date: 20080405
  Serious: Yes (Congenital Anomaly)
  Sender: FDA-Public Use
  Company Number: 8020231

PATIENT
  Sex: Female
  Weight: 6.6 kg

DRUGS (5)
  1. KEPPRA [Suspect]
     Indication: EPILEPSY
     Dosage: 4000 MG /D TRP
     Dates: start: 20060501, end: 20070220
  2. KEPPRA [Suspect]
     Indication: EPILEPSY
     Dosage: 4000 MG /D TRM
     Dates: start: 20070220, end: 20070401
  3. LAMICTAL [Concomitant]
  4. FOLIC ACID [Concomitant]
  5. VITAMIN CAP [Concomitant]

REACTIONS (5)
  - CONGENITAL CHOROID PLEXUS CYST [None]
  - DRUG EXPOSURE DURING PREGNANCY [None]
  - PREGNANCY [None]
  - TRISOMY 21 [None]
  - VENTRICULAR SEPTAL DEFECT [None]
